FAERS Safety Report 5573392-8 (Version None)
Quarter: 2007Q4

REPORT INFORMATION
  Report Type: 
  Country: None (occurrence: None)
  Receive Date: 20071226
  Receipt Date: 20071218
  Transmission Date: 20080405
  Serious: Yes (Life-Threatening, Hospitalization)
  Sender: FDA-Public Use
  Company Number: FR-BRISTOL-MYERS SQUIBB COMPANY-14022495

PATIENT
  Age: 70 Year
  Sex: Female

DRUGS (4)
  1. CYCLOPHOSPHAMIDE [Suspect]
     Indication: MICROSCOPIC POLYANGIITIS
     Dates: start: 20071003, end: 20071121
  2. UROMITEXAN [Suspect]
     Indication: MICROSCOPIC POLYANGIITIS
     Dates: start: 20071003, end: 20071121
  3. BACTRIM [Suspect]
     Indication: MICROSCOPIC POLYANGIITIS
     Dates: start: 20071003, end: 20071112
  4. SOLUPRED [Concomitant]
     Dates: start: 20040101

REACTIONS (1)
  - TOXIC EPIDERMAL NECROLYSIS [None]
